FAERS Safety Report 5954122-4 (Version None)
Quarter: 2008Q4

REPORT INFORMATION
  Report Type: 
  Country: None (occurrence: None)
  Receive Date: 20081113
  Receipt Date: 20081113
  Transmission Date: 20090506
  Serious: No
  Sender: FDA-Public Use
  Company Number: None

PATIENT
  Sex: Female
  Weight: 82.5547 kg

DRUGS (1)
  1. VANCOMYCIN [Suspect]
     Indication: OSTEOMYELITIS
     Dosage: 1000 MG Q8H IV
     Route: 042
     Dates: start: 20081013, end: 20081112

REACTIONS (2)
  - ARTHRALGIA [None]
  - NECK PAIN [None]
